FAERS Safety Report 19592595 (Version 5)
Quarter: 2021Q3

REPORT INFORMATION
  Report Type: Spontaneous
  Country: US (occurrence: US)
  Receive Date: 20210722
  Receipt Date: 20210831
  Transmission Date: 20211014
  Serious: No
  Sender: FDA-Public Use
  Company Number: US-TAKEDA-2021TUS045538

PATIENT
  Age: 55 Year
  Sex: Female
  Weight: 49 kg

DRUGS (4)
  1. TRINTELLIX [Suspect]
     Active Substance: VORTIOXETINE HYDROBROMIDE
     Indication: DEPRESSION
     Dosage: 5 MILLIGRAM, QD
     Route: 065
     Dates: start: 20210830
  2. TRINTELLIX [Suspect]
     Active Substance: VORTIOXETINE HYDROBROMIDE
     Indication: GENERALISED ANXIETY DISORDER
     Dosage: 2.5 MILLIGRAM, QD
     Route: 065
     Dates: start: 20210719
  3. KLONOPIN [Concomitant]
     Active Substance: CLONAZEPAM
     Indication: ANXIETY
     Dosage: 0.5 MILLIGRAM
     Route: 065
  4. TRINTELLIX [Suspect]
     Active Substance: VORTIOXETINE HYDROBROMIDE
     Indication: ANXIETY

REACTIONS (11)
  - Back pain [Not Recovered/Not Resolved]
  - Abnormal faeces [Unknown]
  - Tremor [Unknown]
  - Nausea [Unknown]
  - Off label use [Unknown]
  - Emotional disorder [Unknown]
  - Therapeutic product effect decreased [Unknown]
  - Chest discomfort [Unknown]
  - Agitation [Unknown]
  - Crying [Unknown]
  - Restlessness [Unknown]

NARRATIVE: CASE EVENT DATE: 20210719
